FAERS Safety Report 6138261-3 (Version None)
Quarter: 2009Q1

REPORT INFORMATION
  Report Type: 
  Country: None (occurrence: None)
  Receive Date: 20090331
  Receipt Date: 20090320
  Transmission Date: 20090719
  Serious: Yes (Life-Threatening, Hospitalization)
  Sender: FDA-Public Use
  Company Number: B0566073A

PATIENT
  Age: 78 Year
  Sex: Female

DRUGS (3)
  1. TRACRIUM [Suspect]
     Dosage: 25MG SINGLE DOSE
     Route: 042
     Dates: start: 20090211, end: 20090211
  2. GELOFUSINE [Suspect]
     Indication: PLASMA EXPANDER TRANSFUSION
     Dosage: 200ML PER DAY
     Route: 042
     Dates: start: 20090211, end: 20090211
  3. CEFAZOLIN [Suspect]
     Indication: ANTIBIOTIC PROPHYLAXIS
     Route: 042
     Dates: start: 20090211, end: 20090211

REACTIONS (4)
  - ANAPHYLACTIC SHOCK [None]
  - CIRCULATORY COLLAPSE [None]
  - GENERALISED ERYTHEMA [None]
  - TACHYCARDIA [None]
